FAERS Safety Report 6687806-3 (Version None)
Quarter: 2010Q2

REPORT INFORMATION
  Report Type: 
  Country: None (occurrence: None)
  Receive Date: 20100420
  Receipt Date: 20100412
  Transmission Date: 20101027
  Serious: Yes (Other)
  Sender: FDA-Public Use
  Company Number: US-ASTRAZENECA-2009SE12226

PATIENT
  Age: 56 Year

DRUGS (5)
  1. SEROQUEL [Suspect]
     Route: 048
     Dates: start: 20060101
  2. VASOTEC [Concomitant]
  3. TRICOR [Concomitant]
     Indication: BLOOD TRIGLYCERIDES INCREASED
     Dates: start: 20061004
  4. LEXAPRO [Concomitant]
  5. CODEINE SULFATE [Concomitant]

REACTIONS (4)
  - DIABETES MELLITUS [None]
  - DIABETIC NEPHROPATHY [None]
  - TYPE 1 DIABETES MELLITUS [None]
  - TYPE 2 DIABETES MELLITUS [None]
